FAERS Safety Report 19144366 (Version 3)
Quarter: 2021Q2

REPORT INFORMATION
  Report Type: Report from Study
  Country: CA (occurrence: CA)
  Receive Date: 20210416
  Receipt Date: 20210611
  Transmission Date: 20210717
  Serious: Yes (Other)
  Sender: FDA-Public Use
  Company Number: CA-JNJFOC-20210420813

PATIENT
  Age: 15 Year
  Sex: Male
  Weight: 49.94 kg

DRUGS (4)
  1. REMICADE [Suspect]
     Active Substance: INFLIXIMAB
     Route: 042
  2. REMICADE [Suspect]
     Active Substance: INFLIXIMAB
     Dosage: THERAPY START DATE? 17/OCT/2019
     Route: 042
  3. REMICADE [Suspect]
     Active Substance: INFLIXIMAB
     Indication: CROHN^S DISEASE
     Dosage: DOSE GIVEN ON 01?JUN?2017
     Route: 042
     Dates: start: 20170518
  4. COVID?19 VACCINE NOS. [Suspect]
     Active Substance: COVID-19 VACCINE NOS
     Indication: IMMUNISATION
     Route: 065
     Dates: start: 20210524

REACTIONS (10)
  - Heart rate increased [Unknown]
  - Headache [Recovered/Resolved]
  - Chills [Recovered/Resolved]
  - Pain [Recovered/Resolved]
  - Dizziness [Unknown]
  - Cardiac disorder [Unknown]
  - Nausea [Recovered/Resolved]
  - Electrocardiogram QT prolonged [Unknown]
  - Drug level increased [Unknown]
  - Pyrexia [Recovered/Resolved]

NARRATIVE: CASE EVENT DATE: 202103
